FAERS Safety Report 4943930-4 (Version None)
Quarter: 2006Q1

REPORT INFORMATION
  Report Type: 
  Country: None (occurrence: None)
  Receive Date: 20060313
  Receipt Date: 20060313
  Transmission Date: 20060701
  Serious: Yes (Hospitalization)
  Sender: FDA-Public Use
  Company Number: None

PATIENT
  Sex: Female
  Weight: 58.0604 kg

DRUGS (3)
  1. ZELNORM [Suspect]
     Indication: CONSTIPATION
     Dosage: 6 MG   BID   PO
     Route: 048
     Dates: start: 20040501, end: 20060309
  2. MIRALAX [Concomitant]
  3. LEVSIN [Concomitant]

REACTIONS (2)
  - COLITIS ISCHAEMIC [None]
  - WHITE BLOOD CELL COUNT INCREASED [None]
